FAERS Safety Report 20796613 (Version 5)
Quarter: 2023Q2

REPORT INFORMATION
  Report Type: Spontaneous
  Country: US (occurrence: US)
  Receive Date: 20220506
  Receipt Date: 20230615
  Transmission Date: 20230722
  Serious: Yes (Other)
  Sender: FDA-Public Use
  Company Number: US-PFIZER INC-202101719516

PATIENT
  Age: 54 Year
  Sex: Female

DRUGS (1)
  1. XELJANZ XR [Suspect]
     Active Substance: TOFACITINIB CITRATE
     Indication: Colitis ulcerative
     Dosage: 11 MG, DAILY
     Route: 048
     Dates: start: 20210208

REACTIONS (22)
  - Product dose omission issue [Unknown]
  - Colitis [Unknown]
  - Cellulitis [Unknown]
  - Memory impairment [Not Recovered/Not Resolved]
  - Blood cholesterol decreased [Recovered/Resolved]
  - Blood acid phosphatase increased [Unknown]
  - Muscle spasms [Recovered/Resolved]
  - C-reactive protein increased [Recovering/Resolving]
  - Fibromyalgia [Unknown]
  - Fatigue [Unknown]
  - Mucous stools [Unknown]
  - Nervousness [Unknown]
  - Tremor [Unknown]
  - Change of bowel habit [Unknown]
  - Thinking abnormal [Unknown]
  - Fungal infection [Unknown]
  - Burning sensation [Unknown]
  - Pruritus [Unknown]
  - Malaise [Unknown]
  - Psychiatric symptom [Unknown]
  - Inappropriate schedule of product administration [Unknown]
  - Product dose omission in error [Unknown]

NARRATIVE: CASE EVENT DATE: 20210101
